FAERS Safety Report 9714493 (Version 2)
Quarter: 2014Q2

REPORT INFORMATION
  Report Type: Spontaneous
  Country: US (occurrence: US)
  Receive Date: 20131126
  Receipt Date: 20140404
  Transmission Date: 20141212
  Serious: No
  Sender: FDA-Public Use
  Company Number: US-BIOGENIDEC-2013BI086372

PATIENT
  Age: 61 Year
  Sex: Male
  Weight: 86 kg

DRUGS (18)
  1. TECFIDERA [Suspect]
     Indication: MULTIPLE SCLEROSIS
     Route: 048
     Dates: start: 20130812, end: 20130818
  2. TECFIDERA [Suspect]
     Indication: MULTIPLE SCLEROSIS
     Route: 048
     Dates: start: 20130819
  3. TECFIDERA [Suspect]
     Indication: MULTIPLE SCLEROSIS
     Route: 048
     Dates: start: 20130911, end: 20130917
  4. TECFIDERA [Suspect]
     Indication: MULTIPLE SCLEROSIS
     Route: 048
     Dates: start: 20130918, end: 20130924
  5. TECFIDERA [Suspect]
     Indication: MULTIPLE SCLEROSIS
     Route: 048
     Dates: start: 20130925
  6. AMPYRA [Concomitant]
     Indication: MULTIPLE SCLEROSIS
  7. CYMBALTA [Concomitant]
  8. TOPAMAX [Concomitant]
  9. ALLEGRA [Concomitant]
  10. GABAPENTIN [Concomitant]
  11. BACLOFEN [Concomitant]
  12. AMITRIPTYLINE [Concomitant]
  13. MICARDIS HCT [Concomitant]
  14. VITAMIN D3 [Concomitant]
  15. PROVIGIL [Concomitant]
  16. EDARBYCLOR [Concomitant]
  17. ASPIRIN LOW [Concomitant]
  18. ZOFRAN [Concomitant]
     Indication: PRODUCT USED FOR UNKNOWN INDICATION

REACTIONS (8)
  - Gastrointestinal motility disorder [Unknown]
  - Muscle spasms [Not Recovered/Not Resolved]
  - Drug interaction [Unknown]
  - Adverse event [Unknown]
  - Flushing [Recovered/Resolved]
  - Abdominal pain upper [Not Recovered/Not Resolved]
  - Diarrhoea [Not Recovered/Not Resolved]
  - Gastrointestinal disorder [Unknown]
